FAERS Safety Report 8618828-0 (Version None)
Quarter: 2012Q3

REPORT INFORMATION
  Report Type: 
  Country: None (occurrence: None)
  Receive Date: 20120816
  Receipt Date: 20120816
  Transmission Date: 20120928
  Serious: Yes (Other)
  Sender: FDA-Public Use
  Company Number: None

PATIENT
  Age: 83 Year
  Sex: Male
  Weight: 77.1115 kg

DRUGS (5)
  1. PANTOPRAZOLE [Concomitant]
  2. ALENDRONATE SODIUM [Concomitant]
  3. DULERA [Suspect]
     Indication: DYSPNOEA
     Dosage: 100MCG/5MCG 2 PUFFS BID INHALATION
     Route: 055
     Dates: start: 20120216, end: 20120501
  4. CEFUROXINE AXETIL [Concomitant]
  5. WARFARIN [Concomitant]

REACTIONS (1)
  - CHEST PAIN [None]
